FAERS Safety Report 6441062-X (Version None)
Quarter: 2009Q4

REPORT INFORMATION
  Report Type: 
  Country: None (occurrence: None)
  Receive Date: 20091116
  Receipt Date: 20091103
  Transmission Date: 20100525
  Serious: Yes (Other)
  Sender: FDA-Public Use
  Company Number: GB-ROCHE-666591

PATIENT
  Age: 12 Year
  Sex: Female

DRUGS (3)
  1. TAMIFLU [Suspect]
     Indication: H1N1 INFLUENZA
     Route: 065
     Dates: start: 20091026, end: 20091030
  2. BECLAZONE [Concomitant]
  3. ALBUTEROL [Concomitant]

REACTIONS (4)
  - ABNORMAL BEHAVIOUR [None]
  - CONFUSIONAL STATE [None]
  - CONVERSION DISORDER [None]
  - DELIRIUM [None]
